FAERS Safety Report 4459418-3 (Version None)
Quarter: 2004Q3

REPORT INFORMATION
  Report Type: 
  Country: None (occurrence: None)
  Receive Date: 20040927
  Receipt Date: 20030121
  Transmission Date: 20050211
  Serious: Yes (Other)
  Sender: FDA-Public Use
  Company Number: GB-GLAXOSMITHKLINE-B0290333A

PATIENT
  Age: 32 Year
  Sex: Male
  Weight: 95 kg

DRUGS (8)
  1. PAROXETINE HCL [Suspect]
     Dosage: 50MG THREE TIMES PER DAY
     Route: 048
  2. CLOZARIL [Suspect]
     Indication: SCHIZOPHRENIA
     Route: 048
     Dates: start: 20020805
  3. VENLAFAXINE HCL [Concomitant]
     Route: 065
  4. CHLORPROMAZINE [Concomitant]
     Route: 065
  5. PENICILLIN V [Concomitant]
     Route: 065
  6. PARACETAMOL [Concomitant]
     Route: 065
  7. OMEPRAZOLE [Concomitant]
     Indication: GASTROOESOPHAGEAL REFLUX DISEASE
     Dosage: 20MG PER DAY
     Route: 048
  8. PHENOXYMETHYL PENICILLIN [Concomitant]
     Dosage: 250MG TWICE PER DAY
     Route: 048

REACTIONS (3)
  - DRUG LEVEL INCREASED [None]
  - ELECTROCARDIOGRAM QT PROLONGED [None]
  - SINUS TACHYCARDIA [None]
